FAERS Safety Report 6027802-2 (Version None)
Quarter: 2009Q1

REPORT INFORMATION
  Report Type: 
  Country: None (occurrence: None)
  Receive Date: 20090105
  Receipt Date: 20081229
  Transmission Date: 20090719
  Serious: Yes (Other)
  Sender: FDA-Public Use
  Company Number: US-JNJCH-2008058368

PATIENT
  Age: 53 Year
  Sex: Male
  Weight: 64.9 kg

DRUGS (4)
  1. BENADRYL SEVERE ALLERGY + SINUS HEADACHE W/PE [Suspect]
     Indication: NASOPHARYNGITIS
     Dosage: TEXT:2 TABS-10AM, 2 TABS-2PM, 1 TAB-6PM
     Route: 048
     Dates: start: 20081226, end: 20081226
  2. ALL OTHER THERAPEUTIC PRODUCTS [Concomitant]
     Indication: GASTRIC DISORDER
     Dosage: TEXT:UNSPECIFIED
     Route: 048
  3. ATENOLOL [Concomitant]
     Indication: HYPERTENSION
     Dosage: TEXT:25 MG ONCE A DAY
     Route: 048
  4. PRILOSEC [Concomitant]
     Indication: GASTRIC DISORDER
     Dosage: TEXT:2 TIMES A DAY
     Route: 048

REACTIONS (2)
  - PALPITATIONS [None]
  - PSYCHOMOTOR HYPERACTIVITY [None]
